FAERS Safety Report 4714063-7 (Version None)
Quarter: 2005Q3

REPORT INFORMATION
  Report Type: 
  Country: None (occurrence: None)
  Receive Date: 20050713
  Receipt Date: 20050713
  Transmission Date: 20060218
  Serious: No
  Sender: FDA-Public Use
  Company Number: None

PATIENT
  Age: 58 Year
  Sex: Female
  Weight: 112 kg

DRUGS (4)
  1. TAXOTERE [Suspect]
     Indication: MALIGNANT MELANOMA
     Dosage: 30 MG/M2/20 MG/M2 IV
     Route: 042
     Dates: start: 20050613, end: 20050628
  2. TEMODAR [Suspect]
     Dosage: 150 MG/M2 PO
     Route: 048
     Dates: start: 20050613, end: 20050628
  3. CISPLATIN [Suspect]
     Dates: start: 20050613, end: 20050628
  4. DEXAMETHASONE [Concomitant]

REACTIONS (1)
  - PULMONARY EMBOLISM [None]
